FAERS Safety Report 8307084-9 (Version None)
Quarter: 2012Q2

REPORT INFORMATION
  Report Type: 
  Country: None (occurrence: None)
  Receive Date: 20120424
  Receipt Date: 20120413
  Transmission Date: 20120825
  Serious: Yes (Other)
  Sender: FDA-Public Use
  Company Number: DE-JNJFOC-20120400367

PATIENT
  Sex: Female
  Weight: 70 kg

DRUGS (8)
  1. ACETYLSALICYLIC ACID SRT [Suspect]
     Indication: PRODUCT USED FOR UNKNOWN INDICATION
  2. HYDROCHLOROTHIAZIDE [Concomitant]
  3. XARELTO [Suspect]
     Indication: ATRIAL FIBRILLATION
     Route: 048
     Dates: start: 20120126, end: 20120312
  4. DIOVAN HCT [Concomitant]
  5. BISOPROLOL FUMARATE [Concomitant]
  6. TORSEMIDE [Concomitant]
  7. DIPYRONE TAB [Concomitant]
  8. VALORON [Concomitant]

REACTIONS (4)
  - HAEMOGLOBIN DECREASED [None]
  - MELAENA [None]
  - GASTROINTESTINAL HAEMORRHAGE [None]
  - CIRCULATORY COLLAPSE [None]
